FAERS Safety Report 8053506-0 (Version None)
Quarter: 2012Q1

REPORT INFORMATION
  Report Type: 
  Country: None (occurrence: None)
  Receive Date: 20120118
  Receipt Date: 20120105
  Transmission Date: 20120608
  Serious: Yes (Other)
  Sender: FDA-Public Use
  Company Number: GB-UCBSA-049509

PATIENT
  Age: 76 Year
  Sex: Female

DRUGS (8)
  1. ATORVASTATIN [Suspect]
  2. FUROSEMIDE [Suspect]
  3. LISINOPRIL [Suspect]
  4. GLYCERYL TRINITRATE [Suspect]
  5. WARFARIN SODIUM [Suspect]
  6. CARVEDILOL [Suspect]
  7. DIGOXIN [Suspect]
  8. ISOSORBIDE MONONITRATE [Suspect]

REACTIONS (6)
  - CIRCULATORY COLLAPSE [None]
  - DIZZINESS [None]
  - VENTRICULAR TACHYCARDIA [None]
  - MALAISE [None]
  - PALPITATIONS [None]
  - CHEST PAIN [None]
